FAERS Safety Report 23212892 (Version 4)
Quarter: 2024Q3

REPORT INFORMATION
  Report Type: Report from Study
  Country: US (occurrence: US)
  Receive Date: 20231121
  Receipt Date: 20240910
  Transmission Date: 20241017
  Serious: No
  Sender: NOVARTIS
  Company Number: US-002147023-NVSC2023US246097

PATIENT
  Sex: Male

DRUGS (2)
  1. ENTRESTO [Suspect]
     Active Substance: SACUBITRIL\VALSARTAN
     Indication: Cardiac failure
     Dosage: 24/26 MG, BID
     Route: 065
     Dates: start: 202309
  2. ENTRESTO [Suspect]
     Active Substance: SACUBITRIL\VALSARTAN
     Dosage: 24.26 MG, BID
     Route: 048

REACTIONS (9)
  - COVID-19 [Recovering/Resolving]
  - Abdominal pain [Unknown]
  - Cough [Unknown]
  - Decreased appetite [Unknown]
  - Balance disorder [Unknown]
  - Muscular weakness [Unknown]
  - Vision blurred [Unknown]
  - Anxiety [Unknown]
  - Product use issue [Unknown]
